FAERS Safety Report 10691388 (Version 1)
Quarter: 2015Q1

REPORT INFORMATION
  Report Type: Spontaneous
  Country: TR (occurrence: TR)
  Receive Date: 20150105
  Receipt Date: 20150105
  Transmission Date: 20150720
  Serious: Yes (Death, Other)
  Sender: FDA-Public Use
  Company Number: PHHY2014TR169679

PATIENT
  Age: 71 Year
  Sex: Male

DRUGS (5)
  1. AMANTADINE [Suspect]
     Active Substance: AMANTADINE
     Indication: PARKINSON^S DISEASE
     Route: 065
  2. RASAGILINE [Suspect]
     Active Substance: RASAGILINE
     Indication: PARKINSON^S DISEASE
     Route: 065
  3. PRAMIPEXOLE [Suspect]
     Active Substance: PRAMIPEXOLE
     Indication: PARKINSON^S DISEASE
     Dosage: 3 MG, QD
     Route: 065
  4. PRAMIPEXOLE [Suspect]
     Active Substance: PRAMIPEXOLE
     Dosage: 12 MG, QD
     Route: 065
  5. L DOPA [Suspect]
     Active Substance: LEVODOPA
     Indication: PARKINSON^S DISEASE
     Dosage: 750 MG, QD
     Route: 065

REACTIONS (7)
  - Neck injury [Unknown]
  - Head injury [Unknown]
  - Loss of consciousness [Unknown]
  - On and off phenomenon [Unknown]
  - Stereotypy [Fatal]
  - Impulse-control disorder [Unknown]
  - Dyskinesia [Unknown]
